FAERS Safety Report 13594561 (Version 2)
Quarter: 2018Q2

REPORT INFORMATION
  Report Type: Spontaneous
  Country: US (occurrence: US)
  Receive Date: 20170530
  Receipt Date: 20180530
  Transmission Date: 20180711
  Serious: No
  Sender: FDA-Public Use
  Company Number: US-WEST-WARD PHARMACEUTICALS CORP.-US-H14001-17-00121

PATIENT
  Age: 44 Year
  Sex: Female
  Weight: 65.83 kg

DRUGS (2)
  1. TINIDAZOLE. [Suspect]
     Active Substance: TINIDAZOLE
     Indication: BACTERIAL VAGINOSIS
     Route: 048
     Dates: start: 20170105, end: 20170106
  2. PROBIOTICS [Concomitant]
     Active Substance: PROBIOTICS NOS
     Indication: PRODUCT USED FOR UNKNOWN INDICATION
     Route: 065

REACTIONS (13)
  - Gastroenteritis viral [Recovered/Resolved]
  - Paraesthesia oral [Not Recovered/Not Resolved]
  - Tongue discomfort [Not Recovered/Not Resolved]
  - Pruritus [Not Recovered/Not Resolved]
  - Breast inflammation [Not Recovered/Not Resolved]
  - Breast tenderness [Unknown]
  - Vomiting [Recovered/Resolved]
  - Dysgeusia [Not Recovered/Not Resolved]
  - Dry mouth [Not Recovered/Not Resolved]
  - Diarrhoea [Recovered/Resolved]
  - Tongue discolouration [Recovered/Resolved]
  - Urticaria [Recovered/Resolved]
  - Dry eye [Recovering/Resolving]

NARRATIVE: CASE EVENT DATE: 2017
